FAERS Safety Report 9169019 (Version 1)
Quarter: 2013Q1

REPORT INFORMATION
  Report Type: Spontaneous
  Country: US (occurrence: None)
  Receive Date: 20130314
  Receipt Date: 20130314
  Transmission Date: 20140127
  Serious: Yes (Life-Threatening, Hospitalization)
  Sender: FDA-Public Use
  Company Number: None

PATIENT
  Age: 28 Year
  Sex: Female
  Weight: 63.5 kg

DRUGS (3)
  1. REMICADE [Suspect]
     Indication: COLITIS ULCERATIVE
     Route: 042
     Dates: start: 20110615, end: 20110707
  2. ASACOL [Concomitant]
  3. RANITIDINE [Concomitant]

REACTIONS (3)
  - Anaphylactic shock [None]
  - Local swelling [None]
  - Mobility decreased [None]
